FAERS Safety Report 19386685 (Version 3)
Quarter: 2022Q2

REPORT INFORMATION
  Report Type: Spontaneous
  Country: ES (occurrence: ES)
  Receive Date: 20210608
  Receipt Date: 20220505
  Transmission Date: 20220721
  Serious: Yes (Death, Hospitalization, Other)
  Sender: FDA-Public Use
  Company Number: ES-ACCORD-225443

PATIENT
  Age: 83 Year
  Sex: Female

DRUGS (7)
  1. SPIRONOLACTONE [Suspect]
     Active Substance: SPIRONOLACTONE
     Dosage: 25 UNK
  2. SPIRONOLACTONE [Suspect]
     Active Substance: SPIRONOLACTONE
     Dosage: 50 MG,  DOUBLED DOSE
  3. FUROSEMIDE [Suspect]
     Active Substance: FUROSEMIDE
     Indication: Hypertension
     Dosage: 120 MG, DAILY
  4. FUROSEMIDE [Suspect]
     Active Substance: FUROSEMIDE
     Dosage: 240 MG, DAILY
  5. CARVEDILOL [Concomitant]
     Active Substance: CARVEDILOL
     Indication: Hypertension
     Dosage: 6.25 MG
  6. RAMIPRIL [Concomitant]
     Active Substance: RAMIPRIL
     Indication: Cardiac failure
     Dosage: 2.5 MG
  7. METFORMIN [Concomitant]
     Active Substance: METFORMIN HYDROCHLORIDE
     Indication: Diabetes mellitus
     Dosage: 850 MG

REACTIONS (10)
  - Cardio-respiratory arrest [Fatal]
  - Acute kidney injury [Recovering/Resolving]
  - Hypercapnia [Recovering/Resolving]
  - Metabolic alkalosis [Recovering/Resolving]
  - Cardiac failure [Unknown]
  - Generalised oedema [Unknown]
  - Pulmonary embolism [Unknown]
  - Condition aggravated [Unknown]
  - Oedema [Unknown]
  - Hyponatraemia [Unknown]
